FAERS Safety Report 15143579 (Version 1)
Quarter: 2018Q3

REPORT INFORMATION
  Report Type: Report from Study
  Country: IE (occurrence: IE)
  Receive Date: 20180713
  Receipt Date: 20180713
  Transmission Date: 20181010
  Serious: Yes (Hospitalization)
  Sender: FDA-Public Use
  Company Number: IE-JNJFOC-20180708154

PATIENT
  Age: 80 Year
  Sex: Female

DRUGS (19)
  1. METFORMIN [Concomitant]
     Active Substance: METFORMIN HYDROCHLORIDE
     Dosage: DOSE FREQUENCY: B.D
     Route: 050
  2. COVERSYL [Concomitant]
     Active Substance: PERINDOPRIL
     Route: 050
  3. PRAVASTATIN. [Concomitant]
     Active Substance: PRAVASTATIN
     Route: 050
  4. CALCICHEW [Concomitant]
     Active Substance: CALCIUM CARBONATE
     Route: 050
  5. DIAZEPAM. [Concomitant]
     Active Substance: DIAZEPAM
     Route: 050
  6. SEPTRIN [Concomitant]
     Active Substance: SULFAMETHOXAZOLE\TRIMETHOPRIM
     Route: 050
  7. SOLPADEINE [Concomitant]
     Dosage: DOSE: 2 N/A??DOSE FREQUENCY: PRN (AS REQUIRED)
     Route: 050
  8. PREDNISONE. [Concomitant]
     Active Substance: PREDNISONE
     Route: 050
  9. SOLIFENACIN [Concomitant]
     Active Substance: SOLIFENACIN
     Route: 050
  10. STELARA [Suspect]
     Active Substance: USTEKINUMAB
     Indication: PRODUCT USED FOR UNKNOWN INDICATION
     Route: 058
     Dates: start: 20151202
  11. MIRTAZAPINE. [Concomitant]
     Active Substance: MIRTAZAPINE
     Dosage: DOSE FREQUENCY: NIGHT
     Route: 050
  12. PERSANTIN [Concomitant]
     Active Substance: DIPYRIDAMOLE
     Dosage: DOSE FREQUENCY: B.D
     Route: 050
  13. SENNA [Concomitant]
     Active Substance: SENNA LEAF\SENNOSIDES\SENNOSIDES A AND B
     Dosage: DOSE: 2 N/A ??DOSE FREQUENCY: NIGHT
     Route: 050
  14. LACTULOSE. [Concomitant]
     Active Substance: LACTULOSE
     Dosage: DOSE FREQUENCY: PRN (AS REQUIRED)
     Route: 050
  15. GALFER [Concomitant]
     Active Substance: IRON
     Route: 050
  16. NEXIUM [Concomitant]
     Active Substance: ESOMEPRAZOLE MAGNESIUM
     Route: 050
  17. NUPRIN [Concomitant]
     Active Substance: IBUPROFEN
     Route: 050
  18. ZOPICLONE [Concomitant]
     Active Substance: ZOPICLONE
     Dosage: DOSE FREQUENCY: NIGHT
     Route: 050
  19. DIPYRIDAMOLE. [Concomitant]
     Active Substance: DIPYRIDAMOLE
     Route: 050

REACTIONS (2)
  - Groin pain [Recovered/Resolved]
  - Nasopharyngitis [Recovered/Resolved]

NARRATIVE: CASE EVENT DATE: 20180611
